FAERS Safety Report 8285818-X (Version None)
Quarter: 2012Q2

REPORT INFORMATION
  Report Type: 
  Country: None (occurrence: None)
  Receive Date: 20120413
  Receipt Date: 20120404
  Transmission Date: 20120825
  Serious: Yes (Hospitalization, Other)
  Sender: FDA-Public Use
  Company Number: US-ELI_LILLY_AND_COMPANY-US201112007206

PATIENT
  Sex: Female

DRUGS (19)
  1. FORTEO [Suspect]
     Dosage: 20 UG, QD
     Route: 065
  2. FORTEO [Suspect]
     Dosage: 20 UG, QD
     Route: 065
  3. PERCOCET [Concomitant]
  4. FORTEO [Suspect]
     Indication: OSTEOPOROSIS
     Dosage: 20 UG, QD
     Route: 065
     Dates: start: 20110601
  5. FORTEO [Suspect]
     Dosage: 20 UG, QD
  6. FORTEO [Suspect]
     Dosage: 20 UG, QD
  7. ASPIRIN [Concomitant]
     Dosage: 81 MG, UNK
  8. FERROUS SULFATE TAB [Concomitant]
     Indication: ANAEMIA
  9. IRON [Concomitant]
  10. ACTONEL [Concomitant]
  11. ANTIBIOTICS [Concomitant]
  12. CALCIUM 600 PLUS VITAMIN D [Concomitant]
  13. CALTRATE                           /00751519/ [Concomitant]
  14. VANCOMYCIN [Concomitant]
  15. FORTEO [Suspect]
     Dosage: 20 UG, QD
     Route: 065
  16. PRILOSEC [Concomitant]
     Dosage: UNK, QD
  17. MULTI-VITAMIN [Concomitant]
  18. ATENOLOL [Concomitant]
     Dosage: 25 MG, QD
  19. FISH OIL [Concomitant]

REACTIONS (2)
  - FEMUR FRACTURE [None]
  - HIP SURGERY [None]
